FAERS Safety Report 7454883-1 (Version None)
Quarter: 2011Q2

REPORT INFORMATION
  Report Type: 
  Country: None (occurrence: None)
  Receive Date: 20110503
  Receipt Date: 20110422
  Transmission Date: 20111010
  Serious: Yes (Hospitalization)
  Sender: FDA-Public Use
  Company Number: JP-BRISTOL-MYERS SQUIBB COMPANY-15518665

PATIENT
  Age: 65 Year
  Sex: Male
  Weight: 68 kg

DRUGS (3)
  1. XELODA [Suspect]
     Indication: GASTRIC CANCER
     Dosage: CAPECITABINE TAB ON DAY I -15 RECENT INF:4JAN2011
     Route: 048
     Dates: start: 20101102, end: 20110104
  2. CETUXIMAB [Suspect]
     Indication: GASTRIC CANCER
     Dosage: STRENGTH: 5MG/ML  LAST INFUSION ON 28DEC2010 NO OF INF:8
     Route: 042
     Dates: start: 20101102, end: 20101228
  3. CISPLATIN [Suspect]
     Indication: GASTRIC CANCER
     Dosage: ON DAY 1 OF CYCLE RECENT INF:22DEC2010
     Route: 042
     Dates: start: 20101102, end: 20101222

REACTIONS (1)
  - PULMONARY EMBOLISM [None]
